FAERS Safety Report 9005579 (Version 3)
Quarter: 2013Q1

REPORT INFORMATION
  Report Type: Spontaneous
  Country: DE (occurrence: DE)
  Receive Date: 20130109
  Receipt Date: 20130211
  Transmission Date: 20140127
  Serious: Yes (Hospitalization, Other)
  Sender: FDA-Public Use
  Company Number: DE-PFIZER INC-2012312408

PATIENT
  Age: 39 Year
  Sex: Female

DRUGS (4)
  1. SUTENT [Suspect]
     Indication: METASTATIC RENAL CELL CARCINOMA
     Dosage: 50 MG, CYCLIC (4 CYCLES)
     Route: 048
     Dates: start: 20120902, end: 20121209
  2. NORVASC [Concomitant]
     Dosage: 5 MG, 2X/DAY
  3. L-THYROXIN [Concomitant]
     Dosage: 50 UG, 1X/DAY
  4. PREDNISOLON [Concomitant]
     Dosage: 5 MG, 1X/DAY

REACTIONS (14)
  - Transaminases increased [Recovered/Resolved]
  - Blood lactate dehydrogenase increased [Recovered/Resolved]
  - Acute hepatic failure [Recovered/Resolved]
  - Coagulopathy [Recovered/Resolved]
  - Anaemia [Recovered/Resolved]
  - Hypokalaemia [Recovered/Resolved]
  - Hyponatraemia [Recovered/Resolved]
  - Diarrhoea [Recovered/Resolved]
  - Vomiting [Recovered/Resolved]
  - Nausea [Recovered/Resolved]
  - Blood bilirubin increased [Recovered/Resolved]
  - Hypothyroidism [Recovered/Resolved]
  - Retching [Unknown]
  - Decreased appetite [Unknown]
